FAERS Safety Report 20189607 (Version 1)
Quarter: 2021Q4

REPORT INFORMATION
  Report Type: Spontaneous
  Country: PL (occurrence: PL)
  Receive Date: 20211215
  Receipt Date: 20211215
  Transmission Date: 20220303
  Serious: Yes (Hospitalization, Other)
  Sender: FDA-Public Use
  Company Number: PL-002147023-NVSC2021PL284031

PATIENT

DRUGS (2)
  1. RUXOLITINIB [Suspect]
     Active Substance: RUXOLITINIB
     Indication: Product used for unknown indication
     Dosage: 20 MG, BID
     Route: 065
  2. RUXOLITINIB [Suspect]
     Active Substance: RUXOLITINIB
     Dosage: 40 MG, QD
     Route: 065
     Dates: start: 202105

REACTIONS (12)
  - Anaemia [Unknown]
  - Metastases to liver [Unknown]
  - Pulmonary mass [Unknown]
  - Resorption bone increased [Unknown]
  - Dyspnoea [Unknown]
  - Haemoglobin abnormal [Unknown]
  - Leukocytosis [Unknown]
  - Acute myocardial infarction [Unknown]
  - Pulmonary tuberculosis [Unknown]
  - Platelet count decreased [Unknown]
  - Splenomegaly [Recovered/Resolved]
  - Chest pain [Unknown]

NARRATIVE: CASE EVENT DATE: 20190201
